FAERS Safety Report 7669797-1 (Version None)
Quarter: 2011Q3

REPORT INFORMATION
  Report Type: 
  Country: None (occurrence: None)
  Receive Date: 20110808
  Receipt Date: 20110728
  Transmission Date: 20111222
  Serious: Yes (Other)
  Sender: FDA-Public Use
  Company Number: DO-ASTRAZENECA-2011SE45591

PATIENT
  Age: 61 Year
  Sex: Female

DRUGS (2)
  1. LEXAPRO [Concomitant]
     Route: 048
     Dates: start: 20101001, end: 20110718
  2. ARIMIDEX [Suspect]
     Indication: BREAST CANCER
     Route: 048
     Dates: start: 20110601, end: 20110718

REACTIONS (2)
  - JAUNDICE [None]
  - HEPATIC FUNCTION ABNORMAL [None]
